FAERS Safety Report 8823758 (Version 1)
Quarter: 2012Q4

REPORT INFORMATION
  Report Type: 
  Country: US (occurrence: US)
  Receive Date: 20121003
  Receipt Date: 20121003
  Transmission Date: 20130627
  Serious: No
  Sender: FDA-Public Use
  Company Number: US-ASTRAZENECA-2012SE61243

PATIENT
  Age: 69 Year
  Sex: Female

DRUGS (3)
  1. NEXIUM [Suspect]
     Route: 048
  2. PRILOSEC [Suspect]
     Route: 048
  3. ZANTAC [Concomitant]

REACTIONS (6)
  - Gastrooesophageal reflux disease [Unknown]
  - Scar [Unknown]
  - Condition aggravated [Unknown]
  - Speech disorder [Unknown]
  - Drug dose omission [Unknown]
  - Drug ineffective [Unknown]
